FAERS Safety Report 4833440-7 (Version None)
Quarter: 2005Q4

REPORT INFORMATION
  Report Type: 
  Country: None (occurrence: None)
  Receive Date: 20051117
  Receipt Date: 20051025
  Transmission Date: 20060501
  Serious: Yes (Life-Threatening)
  Sender: FDA-Public Use
  Company Number: S05-BEL-04979-01

PATIENT
  Sex: Female

DRUGS (3)
  1. SIPRALEXA (ESCITALOPRAM) [Suspect]
     Indication: DEPRESSION
     Dosage: 5 MG PO
     Route: 048
     Dates: start: 20051001, end: 20051001
  2. ENOXAPARIN SODIUM [Concomitant]
  3. ROSUVASTATINE (ROSUVASTATIN) [Concomitant]

REACTIONS (4)
  - BRADYCARDIA [None]
  - MALAISE [None]
  - RESPIRATORY ARREST [None]
  - SYNCOPE [None]
